FAERS Safety Report 5925182-1 (Version None)
Quarter: 2008Q4

REPORT INFORMATION
  Report Type: 
  Country: None (occurrence: None)
  Receive Date: 20081020
  Receipt Date: 20081020
  Transmission Date: 20090506
  Serious: Yes (Hospitalization)
  Sender: FDA-Public Use
  Company Number: None

PATIENT
  Age: 33 Year
  Sex: Female
  Weight: 74.8435 kg

DRUGS (2)
  1. HYDROCODONE BITARTRATE + ACETAMINOPHEN [Suspect]
     Indication: ANALGESIA
     Dosage: 1 - 2 TABLETS EVERY 4 -6 HOURS PO
     Route: 048
     Dates: start: 20080921, end: 20080923
  2. HYDROCODONE BITARTRATE + ACETAMINOPHEN [Suspect]
     Indication: ANKLE FRACTURE
     Dosage: 1 - 2 TABLETS EVERY 4 -6 HOURS PO
     Route: 048
     Dates: start: 20080921, end: 20080923

REACTIONS (3)
  - AMNESIA [None]
  - EPILEPSY [None]
  - INJURY [None]
